FAERS Safety Report 16630736 (Version 1)
Quarter: 2019Q3

REPORT INFORMATION
  Report Type: Spontaneous
  Country: FR (occurrence: FR)
  Receive Date: 20190725
  Receipt Date: 20190725
  Transmission Date: 20191004
  Serious: Yes (Life-Threatening)
  Sender: FDA-Public Use
  Company Number: FR-ACCORD-148609

PATIENT
  Age: 73 Year
  Sex: Male
  Weight: 117 kg

DRUGS (12)
  1. L THYROXINE ROCHE [Concomitant]
  2. DIPROSONE [Concomitant]
     Active Substance: BETAMETHASONE DIPROPIONATE
     Dosage: STRENGTH : 0.025 PERCENT
  3. EPLERENONE. [Suspect]
     Active Substance: EPLERENONE
     Indication: CARDIAC FAILURE
     Route: 048
     Dates: end: 20190629
  4. LASILIX SPECIAL [Suspect]
     Active Substance: FUROSEMIDE
     Indication: CARDIAC FAILURE
     Dosage: STRENGTH : 500 MG, SCORED TABLET
     Route: 048
     Dates: end: 20190629
  5. ALLOPURINOL. [Concomitant]
     Active Substance: ALLOPURINOL
  6. IZALGI [Concomitant]
     Active Substance: ACETAMINOPHEN\OPIUM
  7. ATORVASTATIN [Concomitant]
     Active Substance: ATORVASTATIN
  8. ARNICA MONTANA/ARNICA MONTANA EXTRACT/ARNICA MONTANA TINCTURE [Concomitant]
     Dosage: FOR HOMEOPATHIC PREPARATIONS
  9. MINISINTROM [Concomitant]
     Active Substance: ACENOCOUMAROL
     Dosage: STRENGTH : 1 MG
  10. ENTRESTO [Suspect]
     Active Substance: SACUBITRIL\VALSARTAN
     Indication: CARDIAC FAILURE
     Dosage: STRENGTH : 97 MG / 103 MG
     Route: 048
     Dates: start: 20190621, end: 20190629
  11. BISOCE [Concomitant]
     Active Substance: BISOPROLOL
  12. GABAPENTIN. [Concomitant]
     Active Substance: GABAPENTIN

REACTIONS (2)
  - Hyperkalaemia [Recovering/Resolving]
  - Acute kidney injury [Recovering/Resolving]

NARRATIVE: CASE EVENT DATE: 20190621
